FAERS Safety Report 20185433 (Version 1)
Quarter: 2021Q4

REPORT INFORMATION
  Report Type: Spontaneous
  Country: US (occurrence: US)
  Receive Date: 20211215
  Receipt Date: 20211215
  Transmission Date: 20220303
  Serious: No
  Sender: FDA-Public Use
  Company Number: US-ORGANON-O2112USA000291

PATIENT
  Age: 33 Year
  Sex: Female
  Weight: 187.76 kg

DRUGS (1)
  1. NEXPLANON [Suspect]
     Active Substance: ETONOGESTREL
     Dosage: 1 IMPLANT OF 68 MILLIGRAM IN ARM
     Route: 059
     Dates: start: 2017

REACTIONS (3)
  - Weight increased [Not Recovered/Not Resolved]
  - Complication associated with device [Not Recovered/Not Resolved]
  - Incorrect product administration duration [Not Recovered/Not Resolved]

NARRATIVE: CASE EVENT DATE: 20200101
